FAERS Safety Report 4366645-2 (Version None)
Quarter: 2004Q2

REPORT INFORMATION
  Report Type: 
  Country: None (occurrence: None)
  Receive Date: 20040524
  Receipt Date: 20040509
  Transmission Date: 20050107
  Serious: Yes (Death, Hospitalization)
  Sender: FDA-Public Use
  Company Number: 236970

PATIENT
  Age: 32 Year
  Sex: Female
  Weight: 70 kg

DRUGS (3)
  1. NOVORAPID PENFIL (INSULIN ASPART) SOLUTION FOR INJECTION, 100U/ML [Suspect]
     Indication: GESTATIONAL DIABETES
     Dosage: 2 IU/0-1IU/1-2IU
     Dates: start: 20040316, end: 20040323
  2. CEFRADINE [Concomitant]
  3. INSULIN [Concomitant]

REACTIONS (14)
  - ASTHENIA [None]
  - COUGH [None]
  - CYTOLYTIC HEPATITIS [None]
  - FOETAL DISORDER [None]
  - FOETAL HEART RATE ABNORMAL [None]
  - FOETAL MOVEMENTS DECREASED [None]
  - HAEMORRHAGE [None]
  - HAEMORRHAGIC ASCITES [None]
  - INTRA-UTERINE DEATH [None]
  - LYMPHOCYTIC INFILTRATION [None]
  - MARKEDLY REDUCED DIETARY INTAKE [None]
  - NERVOUS SYSTEM DISORDER [None]
  - PLACENTAL DISORDER [None]
  - PLEURAL EFFUSION [None]
